FAERS Safety Report 5257358-3 (Version None)
Quarter: 2007Q1

REPORT INFORMATION
  Report Type: 
  Country: None (occurrence: None)
  Receive Date: 20070302
  Receipt Date: 20070226
  Transmission Date: 20070707
  Serious: Yes (Hospitalization)
  Sender: FDA-Public Use
  Company Number: 6030519

PATIENT
  Age: 88 Year
  Sex: Female

DRUGS (8)
  1. BISOPROLOL FUMARATE [Suspect]
     Indication: DRUG USE FOR UNKNOWN INDICATION
     Dosage: 2. 5MG (1.25 MG, 2 IN 1 D), ORAL
     Route: 048
  2. XANAX [Suspect]
     Indication: DRUG USE FOR UNKNOWN INDICATION
     Dosage: 0.25 MG (0.25 MG, 1 IN 1 D), ORAL
     Route: 048
     Dates: end: 20060502
  3. ASASANTINE (CAPSULE) (DPYRIDAMOLE) [Concomitant]
  4. DIAMICRON (TABLET) (GLICLAZIDE) [Concomitant]
  5. VASTERL (TABLET) (TRIMETAZIDINE HYDROCHLORIDE) [Concomitant]
  6. DAFALGAN (PARACETAMOL) [Concomitant]
  7. RHINOFLUIMICIL )(NASAL SPRAY, SOLUTION) (TUAMINOHEPTANE, ACETYLCYSTEIN [Concomitant]
  8. BRONCHOKOD (CARBOCISTEINE) [Concomitant]

REACTIONS (4)
  - DIZZINESS [None]
  - FALL [None]
  - IATROGENIC INJURY [None]
  - VERTIGO [None]
